FAERS Safety Report 22186656 (Version 5)
Quarter: 2023Q2

REPORT INFORMATION
  Report Type: Report from Study
  Country: CA (occurrence: CA)
  Receive Date: 20230407
  Receipt Date: 20230616
  Transmission Date: 20230722
  Serious: Yes (Other)
  Sender: FDA-Public Use
  Company Number: CA-JNJFOC-20221139285

PATIENT
  Age: 50 Year
  Sex: Female
  Weight: 64.922 kg

DRUGS (3)
  1. SIMPONI [Suspect]
     Active Substance: GOLIMUMAB
     Indication: Rheumatoid arthritis
     Route: 058
     Dates: start: 20220602
  2. SIMPONI [Suspect]
     Active Substance: GOLIMUMAB
     Route: 058
  3. SODIUM CHLORIDE [Suspect]
     Active Substance: SODIUM CHLORIDE
     Indication: Product used for unknown indication
     Route: 065

REACTIONS (11)
  - Sinusitis [Not Recovered/Not Resolved]
  - Osteomyelitis [Not Recovered/Not Resolved]
  - Lower respiratory tract infection [Unknown]
  - Rheumatoid arthritis [Recovering/Resolving]
  - Depressive symptom [Unknown]
  - Tooth loss [Unknown]
  - Inflammation [Unknown]
  - Influenza [Unknown]
  - Oral candidiasis [Unknown]
  - Drug ineffective [Unknown]
  - Nasal discomfort [Unknown]

NARRATIVE: CASE EVENT DATE: 20221213
